FAERS Safety Report 9785768 (Version 1)
Quarter: 2013Q4

REPORT INFORMATION
  Report Type: Spontaneous
  Country: CH (occurrence: CH)
  Receive Date: 20131227
  Receipt Date: 20131227
  Transmission Date: 20140711
  Serious: Yes (Hospitalization)
  Sender: FDA-Public Use
  Company Number: CH-VERTEX PHARMACEUTICALS INC-2013-012059

PATIENT
  Age: 46 Year
  Sex: Female

DRUGS (5)
  1. INCIVO [Suspect]
     Indication: CHRONIC HEPATITIS C
     Dosage: UNK, TID
     Route: 048
     Dates: start: 20121115
  2. PEGINTERFERON ALFA-2A [Suspect]
     Indication: CHRONIC HEPATITIS C
     Dosage: 180 ?G, QW
     Route: 058
     Dates: start: 20121115
  3. RIBAVIRIN [Suspect]
     Indication: CHRONIC HEPATITIS C
     Dosage: 800 MG, QD
     Route: 048
     Dates: start: 20121115
  4. RECORMON [Concomitant]
     Indication: ANAEMIA
     Dosage: 10000 IU, UNK
     Route: 058
     Dates: start: 20121125
  5. IRON POLYMALTOSE [Concomitant]

REACTIONS (1)
  - Irritability [Recovered/Resolved]
